FAERS Safety Report 25157893 (Version 2)
Quarter: 2025Q2

REPORT INFORMATION
  Report Type: Report from Study
  Country: CA (occurrence: CA)
  Receive Date: 20250404
  Receipt Date: 20250430
  Transmission Date: 20250717
  Serious: Yes (Other)
  Sender: ABBVIE
  Company Number: CA-ABBVIE-6204871

PATIENT
  Age: 42 Year
  Sex: Male

DRUGS (1)
  1. SKYRIZI [Suspect]
     Active Substance: RISANKIZUMAB-RZAA
     Indication: Psoriasis
     Route: 058
     Dates: start: 202301, end: 20250128

REACTIONS (6)
  - Hepatic cirrhosis [Unknown]
  - Upper respiratory tract infection [Unknown]
  - Erythema [Recovered/Resolved]
  - Splenomegaly [Unknown]
  - Hepatic steatosis [Unknown]
  - Impetigo [Unknown]

NARRATIVE: CASE EVENT DATE: 20250301
